FAERS Safety Report 19199356 (Version 1)
Quarter: 2021Q2

REPORT INFORMATION
  Report Type: Spontaneous
  Country: CN (occurrence: CN)
  Receive Date: 20210430
  Receipt Date: 20210430
  Transmission Date: 20210717
  Serious: Yes (Disabling)
  Sender: FDA-Public Use
  Company Number: NVSC2021CN090319

PATIENT
  Age: 71 Year
  Sex: Female
  Weight: 65 kg

DRUGS (8)
  1. METRONIDAZOLE. [Suspect]
     Active Substance: METRONIDAZOLE
     Indication: INFECTION
  2. GLUCOBAY [Suspect]
     Active Substance: ACARBOSE
     Indication: TYPE 2 DIABETES MELLITUS
     Dosage: 0.1 G, TID
     Route: 048
     Dates: start: 20210312, end: 20210326
  3. CEFTRIAXONE SODIUM. [Suspect]
     Active Substance: CEFTRIAXONE SODIUM
     Indication: CERVIX CARCINOMA
     Dosage: 2 G, QD
     Route: 041
     Dates: start: 20210309, end: 20210314
  4. SODIUM CHLORIDE. [Suspect]
     Active Substance: SODIUM CHLORIDE
     Indication: CERVIX CARCINOMA
     Dosage: 100 ML, BID
     Route: 041
     Dates: start: 20210309, end: 20210314
  5. SODIUM CHLORIDE. [Suspect]
     Active Substance: SODIUM CHLORIDE
     Indication: INFECTION
  6. METRONIDAZOLE. [Suspect]
     Active Substance: METRONIDAZOLE
     Indication: CERVIX CARCINOMA
     Dosage: 100 ML, BID
     Route: 041
     Dates: start: 20210309, end: 20210314
  7. EXFORGE [Suspect]
     Active Substance: AMLODIPINE BESYLATE\VALSARTAN
     Indication: HYPERTENSION
     Dosage: 1 DF, QD
     Route: 048
     Dates: start: 20210307, end: 20210325
  8. CEFTRIAXONE SODIUM. [Suspect]
     Active Substance: CEFTRIAXONE SODIUM
     Indication: INFECTION

REACTIONS (1)
  - Hepatic function abnormal [Recovering/Resolving]

NARRATIVE: CASE EVENT DATE: 20210317
